FAERS Safety Report 9526563 (Version 1)
Quarter: 2013Q1

REPORT INFORMATION
  Report Type: Spontaneous
  Country: US (occurrence: None)
  Receive Date: 20130305
  Receipt Date: 20130305
  Transmission Date: 20140127
  Serious: Yes (Other)
  Sender: FDA-Public Use
  Company Number: 163-21880-12031294

PATIENT
  Age: 79 Year
  Sex: Male
  Weight: 67.59 kg

DRUGS (17)
  1. REVLIMID (LENALIDOMIDE) (25 MILLIGRAM, CAPSULES) [Suspect]
     Dosage: DAILY X 14 DAYS Q 21 DAYS
     Route: 048
     Dates: start: 20111205
  2. VELCADE (BORTEZOMIB) [Suspect]
  3. ASPIRIN (ACETYLSALICYLIC ACID) [Concomitant]
  4. ACIDOPHILUS (LACTOBACILLUS ACIDOPHILUS) [Concomitant]
  5. BUPROPION (BUPROPION) [Concomitant]
  6. PACERONE (AMIODARONE HYDROCHLORIDE) [Concomitant]
  7. SYNTHROID (LEVOTHYROXINE SODIUM) [Concomitant]
  8. VITAMIN B12 (CYANOCOBALAMIN) [Concomitant]
  9. COREG (CARVEDILOL) [Concomitant]
  10. DECADRON (DEXAMETHASONE) [Concomitant]
  11. EFFEXOR (VENLAFAXINE HYDROCHLORIDE) UNKNOWN [Concomitant]
  12. FISH OIL (FISH OIL) [Concomitant]
  13. FOLIC ACID (FOLIC ACID) [Concomitant]
  14. KLONOPIN (CLONAZEPAM) (TABLETS) [Concomitant]
  15. MACUVITE (OPHTHALMOLOGICAL AND OTOLOGICAL PREPARATIONS) [Concomitant]
  16. MULTIVIT (MULTIVIT) [Concomitant]
  17. OMEPRAZOLE (OMEPRAZOLE) [Concomitant]

REACTIONS (1)
  - Platelet count decreased [None]
